FAERS Safety Report 6288140-6 (Version None)
Quarter: 2009Q3

REPORT INFORMATION
  Report Type: 
  Country: None (occurrence: None)
  Receive Date: 20090729
  Receipt Date: 20090115
  Transmission Date: 20100115
  Serious: No
  Sender: FDA-Public Use
  Company Number: A0763796A

PATIENT
  Age: 4 Month
  Sex: Male

DRUGS (2)
  1. ZANTAC [Suspect]
     Dosage: 1.2ML TWICE PER DAY
     Route: 048
     Dates: start: 20090112, end: 20090112
  2. NO CONCURRENT MEDICATION [Concomitant]

REACTIONS (3)
  - CONTUSION [None]
  - OCULAR HYPERAEMIA [None]
  - PETECHIAE [None]
